FAERS Safety Report 21806403 (Version 1)
Quarter: 2023Q1

REPORT INFORMATION
  Report Type: Report from Study
  Country: GR (occurrence: GR)
  Receive Date: 20230102
  Receipt Date: 20230102
  Transmission Date: 20230417
  Serious: Yes (Hospitalization)
  Sender: FDA-Public Use
  Company Number: GR-TAKEDA-2022TUS102957

PATIENT
  Age: 49 Year
  Sex: Female

DRUGS (8)
  1. PARATHYROID HORMONE [Suspect]
     Active Substance: PARATHYROID HORMONE
     Indication: Hypoparathyroidism
     Dosage: 75 MILLIGRAM, QD
     Route: 065
     Dates: start: 20210701
  2. PARATHYROID HORMONE [Suspect]
     Active Substance: PARATHYROID HORMONE
     Indication: Hypoparathyroidism
     Dosage: 75 MILLIGRAM, QD
     Route: 065
     Dates: start: 20210701
  3. PARATHYROID HORMONE [Suspect]
     Active Substance: PARATHYROID HORMONE
     Indication: Hypoparathyroidism
     Dosage: 75 MILLIGRAM, QD
     Route: 065
     Dates: start: 20210701
  4. CALCIFORM [Concomitant]
     Indication: Calcium deficiency
     Dosage: 1 DOSAGE FORM, QD
     Route: 065
  5. DIURECIDE [Concomitant]
     Indication: Polyuria
     Dosage: 0.5 DOSAGE FORM, QD
     Route: 065
  6. EUTHYROX [Concomitant]
     Active Substance: LEVOTHYROXINE SODIUM
     Indication: Hypothyroidism
     Dosage: 112 MILLIGRAM, QD
     Route: 065
  7. EUTHYROX [Concomitant]
     Active Substance: LEVOTHYROXINE SODIUM
     Dosage: 100 UNK
     Route: 065
  8. MAGNESIUM [Concomitant]
     Active Substance: MAGNESIUM
     Indication: Magnesium deficiency
     Dosage: 2 DOSAGE FORM, QD
     Route: 065

REACTIONS (2)
  - Asthenia [Recovered/Resolved]
  - Incorrect dose administered [Recovered/Resolved]

NARRATIVE: CASE EVENT DATE: 20220830
